FAERS Safety Report 19721106 (Version 2)
Quarter: 2022Q1

REPORT INFORMATION
  Report Type: Spontaneous
  Country: US (occurrence: US)
  Receive Date: 20210819
  Receipt Date: 20220318
  Transmission Date: 20220423
  Serious: Yes (Other)
  Sender: FDA-Public Use
  Company Number: US-PFIZER INC-2021592622

PATIENT
  Age: 74 Year
  Sex: Female
  Weight: 77.56 kg

DRUGS (5)
  1. XANAX [Suspect]
     Active Substance: ALPRAZOLAM
     Indication: Dizziness
     Dosage: 0.25 MG, AS NEEDED
  2. XANAX [Suspect]
     Active Substance: ALPRAZOLAM
     Indication: Meniere^s disease
  3. XANAX [Suspect]
     Active Substance: ALPRAZOLAM
     Indication: Vertigo
  4. XANAX [Suspect]
     Active Substance: ALPRAZOLAM
     Indication: Anxiety
  5. XANAX [Suspect]
     Active Substance: ALPRAZOLAM
     Indication: Pain

REACTIONS (5)
  - Skull fracture [Unknown]
  - Fall [Unknown]
  - Concussion [Unknown]
  - Off label use [Unknown]
  - Drug effective for unapproved indication [Unknown]
